FAERS Safety Report 13730524 (Version 1)
Quarter: 2017Q3

REPORT INFORMATION
  Report Type: Other
  Country: None (occurrence: US)
  Receive Date: 20170707
  Receipt Date: 20170707
  Transmission Date: 20171127
  Serious: Yes (Other)
  Sender: FDA-Public Use
  Company Number: US-GUTHY-RENKER LLC-2023085

PATIENT
  Age: 14 Year
  Sex: Female

DRUGS (1)
  1. VITACLEAR VITAMINS [Suspect]
     Active Substance: MINERALS\VITAMINS
     Indication: MEDICAL DIET
     Route: 048
     Dates: start: 20160201, end: 20160406

REACTIONS (2)
  - Swelling face [None]
  - Urticaria [Recovered/Resolved]

NARRATIVE: CASE EVENT DATE: 20160201
